FAERS Safety Report 10422554 (Version 1)
Quarter: 2014Q3

REPORT INFORMATION
  Report Type: Spontaneous
  Country: BR (occurrence: BR)
  Receive Date: 20140901
  Receipt Date: 20140901
  Transmission Date: 20150326
  Serious: Yes (Life-Threatening, Other)
  Sender: FDA-Public Use
  Company Number: PHHY2014BR109758

PATIENT
  Sex: Female

DRUGS (1)
  1. STALEVO [Suspect]
     Active Substance: CARBIDOPA\ENTACAPONE\LEVODOPA
     Dosage: UNK UKN, UNK

REACTIONS (6)
  - Anxiety [Unknown]
  - Nightmare [Unknown]
  - Malaise [Unknown]
  - Hallucination [Unknown]
  - Apparent death [Unknown]
  - Visual impairment [Unknown]
